FAERS Safety Report 17285287 (Version 1)
Quarter: 2020Q1

REPORT INFORMATION
  Report Type: Report from Study
  Country: US (occurrence: US)
  Receive Date: 20200117
  Receipt Date: 20200117
  Transmission Date: 20200409
  Serious: Yes (Life-Threatening)
  Sender: FDA-Public Use
  Company Number: US-ASTRAZENECA-2020SE06887

PATIENT
  Age: 54 Year
  Sex: Female
  Weight: 49.3 kg

DRUGS (3)
  1. PREXASERTIB [Suspect]
     Active Substance: PREXASERTIB
     Indication: NEOPLASM
     Route: 042
     Dates: start: 20190807, end: 20191022
  2. OLAPARIB. [Suspect]
     Active Substance: OLAPARIB
     Indication: NEOPLASM
     Route: 048
     Dates: start: 20190809, end: 20191022
  3. CEDIRANIB. [Concomitant]
     Active Substance: CEDIRANIB
     Route: 065
     Dates: start: 20160606, end: 20180810

REACTIONS (1)
  - Myelodysplastic syndrome [Unknown]

NARRATIVE: CASE EVENT DATE: 20200114
